FAERS Safety Report 7268062-4 (Version None)
Quarter: 2011Q1

REPORT INFORMATION
  Report Type: 
  Country: None (occurrence: None)
  Receive Date: 20110201
  Receipt Date: 20110119
  Transmission Date: 20110831
  Serious: Yes (Hospitalization)
  Sender: FDA-Public Use
  Company Number: US-WATSON-2011-00617

PATIENT
  Sex: Male
  Weight: 99.773 kg

DRUGS (4)
  1. COREG [Concomitant]
     Indication: PRODUCT USED FOR UNKNOWN INDICATION
     Dosage: UNK
     Route: 048
  2. ASA [Concomitant]
     Indication: PRODUCT USED FOR UNKNOWN INDICATION
     Dosage: UNK
     Route: 048
  3. DIABETES MEDICATION [Concomitant]
     Indication: DIABETES MELLITUS
     Dosage: UNK
     Route: 065
  4. FENTANYL-75 [Suspect]
     Indication: CANCER PAIN
     Dosage: 1 PATCH Q 72H - ONLY USED 2 PATCHES TOTAL
     Route: 062
     Dates: start: 20090901, end: 20090901

REACTIONS (3)
  - SPEECH DISORDER [None]
  - CEREBROVASCULAR ACCIDENT [None]
  - HEMIPARESIS [None]
